FAERS Safety Report 6035937-3 (Version None)
Quarter: 2009Q1

REPORT INFORMATION
  Report Type: 
  Country: None (occurrence: None)
  Receive Date: 20090113
  Receipt Date: 20090108
  Transmission Date: 20090719
  Serious: Yes (Hospitalization)
  Sender: FDA-Public Use
  Company Number: B0553217A

PATIENT
  Age: 80 Year
  Sex: Male

DRUGS (8)
  1. AUGMENTIN '125' [Suspect]
     Indication: URINARY TRACT INFECTION
     Route: 048
     Dates: start: 20010110, end: 20010127
  2. NEURONTIN [Concomitant]
     Dates: start: 20001201
  3. ANDROCUR [Concomitant]
     Route: 048
     Dates: start: 20001201
  4. SINTROM [Concomitant]
     Indication: PROPHYLAXIS
     Route: 048
     Dates: start: 20001201
  5. NEOSIDANTOINA [Concomitant]
     Route: 048
     Dates: start: 20001201
  6. MEVACOR [Concomitant]
     Route: 048
     Dates: start: 20001201
  7. DIGOXIN [Concomitant]
     Route: 048
  8. CAPTOPRIL [Concomitant]
     Route: 048
     Dates: start: 20001201

REACTIONS (7)
  - ALANINE AMINOTRANSFERASE INCREASED [None]
  - ASPARTATE AMINOTRANSFERASE INCREASED [None]
  - BILIRUBIN CONJUGATED INCREASED [None]
  - BLOOD ALKALINE PHOSPHATASE INCREASED [None]
  - GAMMA-GLUTAMYLTRANSFERASE INCREASED [None]
  - HEPATITIS CHOLESTATIC [None]
  - JAUNDICE CHOLESTATIC [None]
